FAERS Safety Report 14749565 (Version 5)
Quarter: 2018Q2

REPORT INFORMATION
  Report Type: Report from Study
  Country: None (occurrence: NL)
  Receive Date: 20180411
  Receipt Date: 20180505
  Transmission Date: 20180711
  Serious: Yes (Death, Life-Threatening, Other)
  Sender: FDA-Public Use
  Company Number: NL-ABBVIE-16P-114-1693640-00

PATIENT
  Age: 64 Year
  Sex: Female
  Weight: 87.4 kg

DRUGS (4)
  1. DUODOPA [Suspect]
     Active Substance: CARBIDOPA\LEVODOPA
     Indication: PARKINSON^S DISEASE
     Dosage: MD: 4.5, CD: 2.4, ED: 1 - 3.5, CND: 2.4
     Route: 050
     Dates: start: 20140629
  2. DUODOPA [Suspect]
     Active Substance: CARBIDOPA\LEVODOPA
     Dosage: MD: 4.5, CD: 2.5, ED: 3.5, ND: 2.4, END:1
     Route: 050
  3. MORPHINE [Concomitant]
     Active Substance: MORPHINE
     Indication: PRODUCT USED FOR UNKNOWN INDICATION
  4. MIDAZOLAM [Concomitant]
     Active Substance: MIDAZOLAM HYDROCHLORIDE
     Indication: PRODUCT USED FOR UNKNOWN INDICATION

REACTIONS (27)
  - Emotional disorder [Not Recovered/Not Resolved]
  - Parkinson^s disease [Not Recovered/Not Resolved]
  - Cognitive disorder [Not Recovered/Not Resolved]
  - Adverse event [Not Recovered/Not Resolved]
  - Anxiety [Recovering/Resolving]
  - Pollakiuria [Not Recovered/Not Resolved]
  - Restlessness [Recovering/Resolving]
  - Hallucination [Recovering/Resolving]
  - Fluid intake reduced [Recovered/Resolved]
  - Mobility decreased [Recovering/Resolving]
  - Incorrect dose administered [Unknown]
  - Abnormal dreams [Not Recovered/Not Resolved]
  - Terminal state [Not Recovered/Not Resolved]
  - Restlessness [Not Recovered/Not Resolved]
  - Nervousness [Not Recovered/Not Resolved]
  - Infrequent bowel movements [Not Recovered/Not Resolved]
  - Gait disturbance [Not Recovered/Not Resolved]
  - Insomnia [Recovering/Resolving]
  - Faeces hard [Not Recovered/Not Resolved]
  - Weight decreased [Not Recovered/Not Resolved]
  - Surgery [Unknown]
  - Partner stress [Unknown]
  - Nightmare [Not Recovered/Not Resolved]
  - Death [Fatal]
  - Device use issue [Not Recovered/Not Resolved]
  - Fluid retention [Not Recovered/Not Resolved]
  - Dysphonia [Not Recovered/Not Resolved]

NARRATIVE: CASE EVENT DATE: 20180410
